FAERS Safety Report 5978282-4 (Version None)
Quarter: 2008Q4

REPORT INFORMATION
  Report Type: 
  Country: None (occurrence: None)
  Receive Date: 20081204
  Receipt Date: 20081128
  Transmission Date: 20090506
  Serious: Yes (Life-Threatening, Hospitalization)
  Sender: FDA-Public Use
  Company Number: GB-ABBOTT-08P-167-0490387-00

PATIENT
  Age: 12 Year
  Sex: Female
  Weight: 45 kg

DRUGS (5)
  1. CLARITHROMYCIN [Suspect]
     Indication: MYCOPLASMA INFECTION
     Dates: start: 20081025, end: 20081027
  2. CHLORAL HYDRATE [Suspect]
     Indication: SEDATION
     Dates: start: 20081027, end: 20081027
  3. ANTIBIOTICS [Concomitant]
     Indication: DRUG USE FOR UNKNOWN INDICATION
     Dosage: 2 COURSE
     Dates: start: 20080101
  4. CEFUROXIME [Concomitant]
     Indication: MYCOPLASMA INFECTION
     Dates: start: 20081025
  5. CEPHALEXIN MONOHYDRATE [Concomitant]
     Indication: DRUG USE FOR UNKNOWN INDICATION

REACTIONS (4)
  - COAGULOPATHY [None]
  - LIVER FUNCTION TEST ABNORMAL [None]
  - TRANSAMINASES INCREASED [None]
  - URINARY TRACT INFECTION [None]
